FAERS Safety Report 9215238 (Version 3)
Quarter: 2013Q2

REPORT INFORMATION
  Report Type: Report from Study
  Country: US (occurrence: US)
  Receive Date: 20130405
  Receipt Date: 20130620
  Transmission Date: 20140414
  Serious: Yes (Hospitalization)
  Sender: FDA-Public Use
  Company Number: US-US-EMD SERONO, INC.-7202758

PATIENT
  Sex: Female

DRUGS (1)
  1. REBIF [Suspect]
     Indication: PRODUCT USED FOR UNKNOWN INDICATION
     Route: 058
     Dates: start: 20130125

REACTIONS (6)
  - Goitre [Recovering/Resolving]
  - Cholelithiasis [Unknown]
  - Hypertension [Recovering/Resolving]
  - Blood test abnormal [Unknown]
  - Blood calcium increased [Unknown]
  - Fatigue [Not Recovered/Not Resolved]
